FAERS Safety Report 7819914-5 (Version None)
Quarter: 2011Q4

REPORT INFORMATION
  Report Type: 
  Country: None (occurrence: None)
  Receive Date: 20111018
  Receipt Date: 20101123
  Transmission Date: 20120403
  Serious: No
  Sender: FDA-Public Use
  Company Number: US-ASTRAZENECA-2010SE55730

PATIENT
  Age: 32 Year
  Sex: Female
  Weight: 102.5 kg

DRUGS (4)
  1. SINGULAIR [Concomitant]
  2. ALBUTEROL [Concomitant]
  3. ESTRADIOL [Concomitant]
  4. SYMBICORT [Suspect]
     Indication: ASTHMA
     Dosage: 320 MCG TWO TIMES A DAY
     Route: 055
     Dates: start: 20090101

REACTIONS (1)
  - CHEST PAIN [None]
